FAERS Safety Report 5026674-2 (Version None)
Quarter: 2006Q2

REPORT INFORMATION
  Report Type: 
  Country: None (occurrence: None)
  Receive Date: 20060615
  Receipt Date: 20060601
  Transmission Date: 20061013
  Serious: Yes (Death)
  Sender: FDA-Public Use
  Company Number: NZ-GLAXOSMITHKLINE-B0427403B

PATIENT

DRUGS (4)
  1. LAMICTAL [Suspect]
     Indication: EPILEPSY
     Dates: start: 20000201
  2. EPILIM [Suspect]
     Indication: EPILEPSY
  3. CLOBAZAM [Suspect]
     Indication: EPILEPSY
     Dates: start: 20010901
  4. FOLIC ACID [Concomitant]
     Dosage: 5MG UNKNOWN

REACTIONS (2)
  - DRUG EXPOSURE DURING PREGNANCY [None]
  - TRISOMY 21 [None]
